FAERS Safety Report 8138871 (Version 3)
Quarter: 2013Q2

REPORT INFORMATION
  Report Type: Spontaneous
  Country: US (occurrence: US)
  Receive Date: 20110915
  Receipt Date: 20130529
  Transmission Date: 20140414
  Serious: Yes (Hospitalization, Other)
  Sender: FDA-Public Use
  Company Number: US-MILLENNIUM PHARMACEUTICALS, INC.-2011-04091

PATIENT
  Age: 69 Year
  Sex: Male
  Weight: 79.91 kg

DRUGS (3)
  1. VELCADE [Suspect]
     Indication: PLASMA CELL MYELOMA
     Dosage: 2 MG, CYCLIC
     Route: 042
     Dates: start: 20110426, end: 20110721
  2. DOXIL /00330902/ [Suspect]
     Indication: PLASMA CELL MYELOMA
     Dosage: 10 MG, CYCLIC
     Route: 042
     Dates: start: 20110426, end: 20110721
  3. DEXAMETHASONE [Suspect]
     Indication: PLASMA CELL MYELOMA
     Dosage: 40 MG, UNK
     Route: 048
     Dates: start: 20110426, end: 20110721

REACTIONS (4)
  - Haemorrhagic stroke [Unknown]
  - Renal impairment [Unknown]
  - Acute myocardial infarction [Recovered/Resolved]
  - Blood creatinine increased [Unknown]
